FAERS Safety Report 9536119 (Version 1)
Quarter: 2013Q2

REPORT INFORMATION
  Report Type: Spontaneous
  Country: US (occurrence: None)
  Receive Date: 20130507
  Receipt Date: 20130507
  Transmission Date: 20140414
  Serious: No
  Sender: FDA-Public Use
  Company Number: PHEH2012US019964

PATIENT
  Age: 62 Year
  Sex: Female

DRUGS (2)
  1. AFINITOR (RAD) [Suspect]
     Indication: RENAL CELL CARCINOMA
     Route: 048
     Dates: start: 20120821
  2. KETOCONAZOLE (KETOCONAZOLE) [Concomitant]

REACTIONS (3)
  - Malignant neoplasm progression [None]
  - Gingival infection [None]
  - Nausea [None]
